FAERS Safety Report 4974940-9 (Version None)
Quarter: 2006Q2

REPORT INFORMATION
  Report Type: 
  Country: None (occurrence: None)
  Receive Date: 20060418
  Receipt Date: 20060406
  Transmission Date: 20061013
  Serious: Yes (Hospitalization, Other)
  Sender: FDA-Public Use
  Company Number: US-KINGPHARMUSA00001-K200600438

PATIENT
  Age: 65 Year
  Sex: Male

DRUGS (8)
  1. ALTACE [Suspect]
     Dosage: 10 MG, QD
     Route: 048
  2. ALDACTONE [Suspect]
     Dosage: 25 MG, QD
     Route: 048
     Dates: end: 20060217
  3. KALEORID [Suspect]
     Dosage: 1200 MG, QD
     Route: 048
     Dates: start: 20060203, end: 20060217
  4. BURINEX [Concomitant]
     Route: 048
  5. CARDENSIEL [Concomitant]
     Route: 048
  6. CORDARONE [Concomitant]
     Route: 048
  7. PREVISCAN [Concomitant]
     Route: 048
  8. NOVONORM [Concomitant]
     Dosage: UNK, UNK
     Route: 048

REACTIONS (6)
  - ATRIAL FIBRILLATION [None]
  - ATRIOVENTRICULAR BLOCK [None]
  - BLOOD CREATININE INCREASED [None]
  - CARDIAC FAILURE [None]
  - HYPERKALAEMIA [None]
  - RENAL FAILURE ACUTE [None]
